FAERS Safety Report 19689288 (Version 13)
Quarter: 2024Q4

REPORT INFORMATION
  Report Type: Spontaneous
  Country: JP (occurrence: JP)
  Receive Date: 20210812
  Receipt Date: 20241101
  Transmission Date: 20250115
  Serious: Yes (Life-Threatening, Other)
  Sender: BRISTOL-MYERS SQUIBB COMPANY
  Company Number: JP-BRISTOL-MYERS SQUIBB COMPANY-BMS-2021-036129

PATIENT
  Age: 72 Year
  Sex: Male

DRUGS (8)
  1. YERVOY [Suspect]
     Active Substance: IPILIMUMAB
     Indication: Non-small cell lung cancer recurrent
     Dosage: 1 MG/KG, Q3W
     Route: 041
     Dates: start: 20210325
  2. OPDIVO [Suspect]
     Active Substance: NIVOLUMAB
     Indication: Non-small cell lung cancer recurrent
     Dosage: 240 MG, Q2W
     Route: 041
     Dates: start: 20210325
  3. DEXAMETHASONE [Concomitant]
     Active Substance: DEXAMETHASONE
     Indication: Metastases to central nervous system
  4. DEXAMETHASONE [Concomitant]
     Active Substance: DEXAMETHASONE
     Dosage: DOSE INCREASED 2 WEEKS LATER
  5. DEXAMETHASONE [Concomitant]
     Active Substance: DEXAMETHASONE
     Dosage: UNK
  6. CARBOPLATIN [Concomitant]
     Active Substance: CARBOPLATIN
     Indication: Non-small cell lung cancer
  7. PEMETREXED DISODIUM [Concomitant]
     Active Substance: PEMETREXED DISODIUM
     Indication: Non-small cell lung cancer
  8. CAPMATINIB HYDROCHLORIDE [Concomitant]
     Active Substance: CAPMATINIB HYDROCHLORIDE
     Indication: Non-small cell lung cancer

REACTIONS (7)
  - Interstitial lung disease [Not Recovered/Not Resolved]
  - Immune-mediated oesophagitis [Unknown]
  - Helicobacter infection [Unknown]
  - Immune-mediated gastritis [Unknown]
  - Duodenitis [Unknown]
  - Pneumonitis [Recovered/Resolved]
  - Malignant neoplasm progression [Unknown]

NARRATIVE: CASE EVENT DATE: 20210401
